FAERS Safety Report 13737533 (Version 1)
Quarter: 2017Q3

REPORT INFORMATION
  Report Type: Spontaneous
  Country: CN (occurrence: CN)
  Receive Date: 20170710
  Receipt Date: 20170710
  Transmission Date: 20171127
  Serious: Yes (Other)
  Sender: FDA-Public Use
  Company Number: CN-PFIZER INC-2017296472

PATIENT
  Age: 46 Year
  Sex: Male
  Weight: 60 kg

DRUGS (3)
  1. CELECOXIB. [Suspect]
     Active Substance: CELECOXIB
     Indication: ANALGESIC THERAPY
     Dosage: 0.2 G, 2X/DAY
     Route: 048
     Dates: start: 20170512, end: 20170516
  2. LIPITOR [Suspect]
     Active Substance: ATORVASTATIN CALCIUM
     Indication: HYPERCHOLESTEROLAEMIA
     Dosage: 20 MG, 1X/DAY
     Route: 048
     Dates: start: 20170514, end: 20170519
  3. CELECOXIB. [Suspect]
     Active Substance: CELECOXIB
     Dosage: 0.2 G, 3X/DAY
     Route: 048
     Dates: start: 20170517, end: 20170519

REACTIONS (4)
  - Shock [Unknown]
  - Liver injury [Recovering/Resolving]
  - Disease progression [Unknown]
  - Infection [Unknown]

NARRATIVE: CASE EVENT DATE: 20170519
